FAERS Safety Report 10172656 (Version 1)
Quarter: 2014Q2

REPORT INFORMATION
  Report Type: Report from Study
  Country: CA (occurrence: CA)
  Receive Date: 20140515
  Receipt Date: 20140515
  Transmission Date: 20141212
  Serious: Yes (Other)
  Sender: FDA-Public Use
  Company Number: CA-BRISTOL-MYERS SQUIBB COMPANY-20724241

PATIENT
  Age: 51 Year
  Sex: Female

DRUGS (4)
  1. ABATACEPT SUBQ INJECTION 125MG/ML [Suspect]
     Indication: RHEUMATOID ARTHRITIS
     Dosage: 1 DF : 125 UNITS NOS.
     Route: 058
     Dates: start: 20131219
  2. PREDNISONE [Concomitant]
  3. LOSEC [Concomitant]
  4. ARAVA [Concomitant]

REACTIONS (1)
  - Hip fracture [Unknown]
